FAERS Safety Report 21783719 (Version 3)
Quarter: 2023Q1

REPORT INFORMATION
  Report Type: Spontaneous
  Country: US (occurrence: US)
  Receive Date: 20221227
  Receipt Date: 20230113
  Transmission Date: 20230417
  Serious: No
  Sender: FDA-Public Use
  Company Number: US-PFIZER INC-202201389122

PATIENT
  Age: 95 Year
  Sex: Male
  Weight: 74.83 kg

DRUGS (1)
  1. VYNDAMAX [Suspect]
     Active Substance: TAFAMIDIS
     Dosage: 61 MG, 1X/DAY

REACTIONS (3)
  - Hypoacusis [Unknown]
  - Concussion [Unknown]
  - Speech disorder [Unknown]
